FAERS Safety Report 5706545-6 (Version None)
Quarter: 2008Q2

REPORT INFORMATION
  Report Type: 
  Country: None (occurrence: None)
  Receive Date: 20080415
  Receipt Date: 20080402
  Transmission Date: 20081010
  Serious: Yes (Hospitalization)
  Sender: FDA-Public Use
  Company Number: US-ELI_LILLY_AND_COMPANY-US200804000723

PATIENT
  Sex: Female

DRUGS (7)
  1. GEMZAR [Suspect]
     Indication: BLADDER CANCER
     Dosage: 1600 MG, UNK
     Route: 042
     Dates: start: 20080221
  2. CARBOPLATIN [Concomitant]
     Dosage: 550 UNK, UNK
  3. COUMADIN [Concomitant]
  4. ATENOLOL [Concomitant]
  5. LIPITOR [Concomitant]
  6. PERCOCET [Concomitant]
     Dosage: UNK, AS NEEDED
  7. ANTIEMETICS AND ANTINAUSEANTS [Concomitant]

REACTIONS (2)
  - ANAEMIA [None]
  - PNEUMONIA [None]
